FAERS Safety Report 4306833-4 (Version None)
Quarter: 2004Q1

REPORT INFORMATION
  Report Type: 
  Country: None (occurrence: None)
  Receive Date: 20040225
  Receipt Date: 20040209
  Transmission Date: 20041129
  Serious: No
  Sender: FDA-Public Use
  Company Number: US_0402100693

PATIENT
  Age: 14 Year
  Sex: Male

DRUGS (1)
  1. ZYPREXA [Suspect]
     Indication: ACUTE PSYCHOSIS
     Dosage: 20 MG/1 DAY
     Dates: start: 20040202

REACTIONS (1)
  - EPISTAXIS [None]
